FAERS Safety Report 19889995 (Version 1)
Quarter: 2021Q3

REPORT INFORMATION
  Report Type: Spontaneous
  Country: FR (occurrence: FR)
  Receive Date: 20210928
  Receipt Date: 20210928
  Transmission Date: 20211014
  Serious: Yes (Other)
  Sender: FDA-Public Use
  Company Number: FR-ACCORD-239761

PATIENT
  Age: 68 Year
  Sex: Male
  Weight: 75 kg

DRUGS (2)
  1. EXELON [Suspect]
     Active Substance: RIVASTIGMINE TARTRATE
     Indication: DEMENTIA
     Dosage: 4.25MG / DAY 10 DAYS THEN 9.7MG / DAY
     Route: 048
     Dates: start: 20210111, end: 20210120
  2. QUETIAPINE ACCORD [Suspect]
     Active Substance: QUETIAPINE
     Indication: DEMENTIA
     Dosage: LP 50MG / DAY FOR 5?7 DAYS THEN 100MG / DAY
     Route: 048
     Dates: start: 20210111, end: 20210120

REACTIONS (1)
  - Pancytopenia [Recovering/Resolving]

NARRATIVE: CASE EVENT DATE: 20210118
